FAERS Safety Report 4487095-4 (Version None)
Quarter: 2004Q4

REPORT INFORMATION
  Report Type: 
  Country: None (occurrence: None)
  Receive Date: 20041027
  Receipt Date: 20041014
  Transmission Date: 20050328
  Serious: Yes (Other)
  Sender: FDA-Public Use
  Company Number: FR-GLAXOSMITHKLINE-B0348379A

PATIENT
  Sex: Male

DRUGS (4)
  1. ZIAGEN [Suspect]
     Indication: HIV INFECTION
     Route: 048
     Dates: start: 20040901, end: 20040915
  2. TELZIR [Suspect]
     Indication: HIV INFECTION
     Route: 048
     Dates: start: 20040901, end: 20041014
  3. SUSTIVA [Suspect]
     Indication: HIV INFECTION
     Route: 048
     Dates: start: 20040901, end: 20041014
  4. NORVIR [Concomitant]
     Indication: HIV INFECTION
     Route: 048
     Dates: start: 20040901, end: 20041014

REACTIONS (3)
  - CYTOLYTIC HEPATITIS [None]
  - PYREXIA [None]
  - RASH ERYTHEMATOUS [None]
